FAERS Safety Report 5720036-8 (Version None)
Quarter: 2008Q2

REPORT INFORMATION
  Report Type: 
  Country: None (occurrence: None)
  Receive Date: 20080423
  Receipt Date: 20070310
  Transmission Date: 20081010
  Serious: Yes (Other)
  Sender: FDA-Public Use
  Company Number: 232583

PATIENT

DRUGS (5)
  1. AVASTIN [Suspect]
     Indication: RENAL CELL CARCINOMA
  2. SUNITINIB MALATE (SUNITINIB MALATE) [Concomitant]
  3. FLUOROURACIL [Concomitant]
  4. OXALIPLATIN [Concomitant]
  5. LEUCOVORIN CALCIUM [Concomitant]

REACTIONS (1)
  - HAEMORRHAGE [None]
